FAERS Safety Report 15119065 (Version 1)
Quarter: 2018Q3

REPORT INFORMATION
  Report Type: Spontaneous
  Country: PL (occurrence: PL)
  Receive Date: 20180709
  Receipt Date: 20180709
  Transmission Date: 20181010
  Serious: Yes (Hospitalization)
  Sender: FDA-Public Use
  Company Number: PL-ROCHE-2147579

PATIENT
  Sex: Female

DRUGS (3)
  1. DOCETAXEL. [Suspect]
     Active Substance: DOCETAXEL
     Indication: HER-2 POSITIVE BREAST CANCER
     Dosage: UNK
     Route: 065
  2. BORTEZOMIB. [Suspect]
     Active Substance: BORTEZOMIB
     Indication: HER-2 POSITIVE BREAST CANCER
     Dosage: UNK
     Route: 065
  3. TRASTUZUMAB. [Suspect]
     Active Substance: TRASTUZUMAB
     Indication: HER-2 POSITIVE BREAST CANCER
     Dosage: UNK
     Route: 065

REACTIONS (7)
  - HER-2 positive breast cancer [Unknown]
  - Rash maculo-papular [Unknown]
  - Malignant neoplasm progression [Unknown]
  - Diarrhoea [Unknown]
  - Dehydration [Unknown]
  - Mucosal inflammation [Unknown]
  - Febrile neutropenia [Unknown]

NARRATIVE: CASE EVENT DATE: 201304
